FAERS Safety Report 14702826 (Version 3)
Quarter: 2018Q2

REPORT INFORMATION
  Report Type: Report from Study
  Country: None (occurrence: US)
  Receive Date: 20180402
  Receipt Date: 20180412
  Transmission Date: 20180711
  Serious: Yes (Hospitalization, Other)
  Sender: FDA-Public Use
  Company Number: US-ABBVIE-18K-163-2302529-00

PATIENT
  Age: 71 Year
  Sex: Female
  Weight: 66.74 kg

DRUGS (8)
  1. LABETALOL [Concomitant]
     Active Substance: LABETALOL\LABETALOL HYDROCHLORIDE
     Indication: HYPERTENSION
  2. LISINOPRIL AND HYDROCHLOROTHIAZIDE [Concomitant]
     Active Substance: HYDROCHLOROTHIAZIDE\LISINOPRIL
     Indication: HYPERTENSION
  3. HUMIRA [Suspect]
     Active Substance: ADALIMUMAB
     Indication: RHEUMATOID ARTHRITIS
     Route: 058
     Dates: start: 201612, end: 201802
  4. CIPROFLOXACIN. [Suspect]
     Active Substance: CIPROFLOXACIN
     Indication: URINARY TRACT INFECTION
     Route: 065
     Dates: start: 20180208, end: 20180213
  5. ATORVASTATIN [Concomitant]
     Active Substance: ATORVASTATIN
     Indication: BLOOD CHOLESTEROL INCREASED
  6. LEVOTHYROXINE. [Concomitant]
     Active Substance: LEVOTHYROXINE
     Indication: HYPOTHYROIDISM
  7. CLOPIDOGREL [Concomitant]
     Active Substance: CLOPIDOGREL BISULFATE
     Indication: THROMBOSIS PROPHYLAXIS
  8. GABAPENTIN. [Concomitant]
     Active Substance: GABAPENTIN
     Indication: NEUROPATHY PERIPHERAL

REACTIONS (20)
  - Balance disorder [Recovering/Resolving]
  - Cystitis [Recovered/Resolved]
  - Malaise [Unknown]
  - Nosocomial infection [Unknown]
  - Hemiparesis [Unknown]
  - Varicose vein ruptured [Unknown]
  - Balance disorder [Unknown]
  - Fall [Recovered/Resolved]
  - Sepsis [Recovered/Resolved]
  - Pollakiuria [Recovered/Resolved]
  - Diarrhoea [Recovered/Resolved]
  - Sepsis [Unknown]
  - Varicose vein [Unknown]
  - Nausea [Recovered/Resolved]
  - Blindness transient [Unknown]
  - Urinary tract infection [Recovered/Resolved]
  - Laceration [Recovered/Resolved]
  - Dehydration [Unknown]
  - Vomiting [Recovered/Resolved]
  - Clostridium difficile infection [Recovered/Resolved]

NARRATIVE: CASE EVENT DATE: 201802
